FAERS Safety Report 7604119-3 (Version None)
Quarter: 2011Q3

REPORT INFORMATION
  Report Type: 
  Country: None (occurrence: None)
  Receive Date: 20110712
  Receipt Date: 20110705
  Transmission Date: 20111222
  Serious: Yes (Other)
  Sender: FDA-Public Use
  Company Number: FR-PFIZER INC-2011149475

PATIENT
  Age: 43 Year
  Sex: Female

DRUGS (5)
  1. SOMAVERT [Suspect]
     Dosage: 20 MG, 1X/DAY
     Dates: end: 20110101
  2. SANDOSTATIN [Concomitant]
     Dosage: 30 MG, MONTHLY
     Dates: start: 20040101
  3. SOMAVERT [Suspect]
     Indication: ACROMEGALY
     Dosage: 10 MG, 1X/DAY
     Route: 058
     Dates: start: 20050101
  4. LEVOTHYROXINE [Suspect]
     Dosage: 125 UG, 1X/DAY
     Route: 048
     Dates: start: 20100101, end: 20101001
  5. LEVOTHYROXINE SODIUM [Suspect]
     Dosage: 125 UG, 1X/DAY
     Route: 048
     Dates: start: 20101101

REACTIONS (3)
  - IRRITABILITY [None]
  - AFFECTIVE DISORDER [None]
  - ANXIETY DISORDER [None]
